FAERS Safety Report 23036250 (Version 1)
Quarter: 2023Q4

REPORT INFORMATION
  Report Type: Report from Study
  Country: ES (occurrence: ES)
  Receive Date: 20231006
  Receipt Date: 20231006
  Transmission Date: 20240110
  Serious: Yes (Hospitalization)
  Sender: FDA-Public Use
  Company Number: None

PATIENT
  Age: 67 Year
  Sex: Female

DRUGS (1)
  1. LEVETIRACETAM [Suspect]
     Active Substance: LEVETIRACETAM
     Indication: Epilepsy
     Dosage: 1,500 MG
     Dates: start: 20190530

REACTIONS (4)
  - Akathisia [Recovered/Resolved]
  - Confusional state [Recovering/Resolving]
  - Psychomotor hyperactivity [Recovered/Resolved]
  - Slow speech [Recovering/Resolving]

NARRATIVE: CASE EVENT DATE: 20190603
